FAERS Safety Report 5547229-7 (Version None)
Quarter: 2007Q4

REPORT INFORMATION
  Report Type: 
  Country: None (occurrence: None)
  Receive Date: 20071211
  Receipt Date: 20071204
  Transmission Date: 20080405
  Serious: Yes (Hospitalization)
  Sender: FDA-Public Use
  Company Number: A0697267A

PATIENT
  Age: 84 Year
  Sex: Male

DRUGS (9)
  1. AVODART [Suspect]
     Indication: BENIGN PROSTATIC HYPERPLASIA
     Dosage: .5MG PER DAY
     Route: 048
     Dates: start: 20071126, end: 20071128
  2. NAMENDA [Concomitant]
  3. UROXATRAL [Concomitant]
  4. QUINAPRIL HCL [Concomitant]
  5. EXELON [Concomitant]
  6. ASPIRIN [Concomitant]
  7. VITAMIN [Concomitant]
  8. GLUCOSAMINE + CHONDROITIN [Concomitant]
  9. VITAMIN E [Concomitant]

REACTIONS (3)
  - ABASIA [None]
  - MEDICATION ERROR [None]
  - MUSCULAR WEAKNESS [None]
